FAERS Safety Report 4650401-1 (Version None)
Quarter: 2005Q2

REPORT INFORMATION
  Report Type: 
  Country: None (occurrence: None)
  Receive Date: 20050429
  Receipt Date: 20050422
  Transmission Date: 20051028
  Serious: Yes (Death, Hospitalization)
  Sender: FDA-Public Use
  Company Number: 2004AC00431

PATIENT
  Age: 56 Year

DRUGS (3)
  1. ATENOLOL [Suspect]
  2. ISOSORBIDE DINITRATE [Suspect]
  3. LISINOPRIL [Suspect]

REACTIONS (2)
  - CARDIO-RESPIRATORY ARREST [None]
  - COMPLETED SUICIDE [None]
